FAERS Safety Report 7561728-8 (Version None)
Quarter: 2011Q2

REPORT INFORMATION
  Report Type: 
  Country: None (occurrence: None)
  Receive Date: 20110621
  Receipt Date: 20100623
  Transmission Date: 20111010
  Serious: No
  Sender: FDA-Public Use
  Company Number: US-ASTRAZENECA-2010SE29457

PATIENT
  Age: 15 Year
  Sex: Female

DRUGS (1)
  1. RHINOCORT [Suspect]
     Route: 045
     Dates: start: 20100101

REACTIONS (2)
  - EYE INFLAMMATION [None]
  - ACCIDENTAL EXPOSURE [None]
